FAERS Safety Report 21910099 (Version 1)
Quarter: 2023Q1

REPORT INFORMATION
  Report Type: Spontaneous
  Country: US (occurrence: US)
  Receive Date: 20230125
  Receipt Date: 20230125
  Transmission Date: 20230417
  Serious: No
  Sender: FDA-Public Use
  Company Number: US-ALLERGAN-2202577US

PATIENT
  Age: 33 Year
  Sex: Female
  Weight: 68.027 kg

DRUGS (2)
  1. BOTOX COSMETIC [Suspect]
     Active Substance: ONABOTULINUMTOXINA
     Indication: Skin wrinkling
     Dosage: 20 UNITS, SINGLE
  2. BOTOX COSMETIC [Suspect]
     Active Substance: ONABOTULINUMTOXINA
     Indication: Skin wrinkling
     Dosage: 12 UNITS, SINGLE

REACTIONS (11)
  - Head discomfort [Recovering/Resolving]
  - Altered visual depth perception [Recovering/Resolving]
  - Muscle twitching [Recovering/Resolving]
  - Electric shock sensation [Recovering/Resolving]
  - Oropharyngeal discomfort [Recovering/Resolving]
  - Asthenopia [Recovering/Resolving]
  - Dizziness [Recovering/Resolving]
  - Vision blurred [Recovering/Resolving]
  - Visual impairment [Recovering/Resolving]
  - Muscular weakness [Recovering/Resolving]
  - Dysphagia [Recovering/Resolving]

NARRATIVE: CASE EVENT DATE: 20211106
